FAERS Safety Report 24687503 (Version 3)
Quarter: 2025Q4

REPORT INFORMATION
  Report Type: Spontaneous
  Country: US (occurrence: US)
  Receive Date: 20241202
  Receipt Date: 20251003
  Transmission Date: 20260118
  Serious: Yes (Hospitalization, Other)
  Sender: BRISTOL-MYERS SQUIBB COMPANY
  Company Number: US-BRISTOL-MYERS SQUIBB COMPANY-2024-185279

PATIENT
  Age: 32 Year
  Sex: Male

DRUGS (4)
  1. COBENFY [Suspect]
     Active Substance: TROSPIUM CHLORIDE\XANOMELINE
     Indication: Schizophrenia
     Dosage: DOSE: 100 MG /20 MG FOR 10 DOSES; FREQ: TWICE A DAY
     Dates: start: 20241121
  2. COBENFY [Suspect]
     Active Substance: TROSPIUM CHLORIDE\XANOMELINE
     Dosage: DOSE: 50 MG /20 MG FOR FOUR DOSES
     Dates: start: 20241119, end: 20241121
  3. RISPERIDONE [Suspect]
     Active Substance: RISPERIDONE
     Indication: Schizophrenia
     Dosage: TITRATED UP TO RISPERIDONE 8 MG TWICE DAILY, AND SLOWLY TAPERED OFF OVER THE FOLLOWING DAYS AFTER INITIATING COBENFY
  4. CLOZAPINE [Suspect]
     Active Substance: CLOZAPINE
     Indication: Schizophrenia
     Dosage: 300 MG EVERY MORNING AND 400 MG BEFORE BED, FINAL DOSING BEFORE CROSS TITRATION
     Dates: start: 20231124, end: 20241031

REACTIONS (2)
  - Neutropenia [Unknown]
  - Constipation [Unknown]

NARRATIVE: CASE EVENT DATE: 20241101
